FAERS Safety Report 8176514-8 (Version None)
Quarter: 2012Q1

REPORT INFORMATION
  Report Type: 
  Country: None (occurrence: None)
  Receive Date: 20120301
  Receipt Date: 20120228
  Transmission Date: 20120608
  Serious: Yes (Other)
  Sender: FDA-Public Use
  Company Number: JP-PFIZER INC-2012052948

PATIENT
  Age: 15 Year
  Sex: Male

DRUGS (1)
  1. ALDACTONE [Suspect]
     Dosage: UNK

REACTIONS (1)
  - GONADAL DYSGENESIS [None]
